FAERS Safety Report 4705707-4 (Version None)
Quarter: 2005Q3

REPORT INFORMATION
  Report Type: 
  Country: None (occurrence: None)
  Receive Date: 20050701
  Receipt Date: 20050624
  Transmission Date: 20060218
  Serious: Yes (Hospitalization)
  Sender: FDA-Public Use
  Company Number: AU-MERCK-0506AUS00209

PATIENT
  Age: 84 Year
  Sex: Male

DRUGS (4)
  1. FOSAMAX [Suspect]
     Indication: OSTEOPOROSIS
     Route: 048
     Dates: end: 20041201
  2. ESOMEPRAZOLE MAGNESIUM [Concomitant]
     Route: 065
  3. PROSCAR [Concomitant]
     Route: 048
  4. PRAZOSIN HYDROCHLORIDE [Concomitant]
     Route: 065

REACTIONS (3)
  - FALL [None]
  - FRACTURE [None]
  - UPPER GASTROINTESTINAL HAEMORRHAGE [None]
